FAERS Safety Report 21021945 (Version 1)
Quarter: 2022Q2

REPORT INFORMATION
  Report Type: Spontaneous
  Country: US (occurrence: US)
  Receive Date: 20220629
  Receipt Date: 20220629
  Transmission Date: 20220721
  Serious: Yes (Other)
  Sender: FDA-Public Use
  Company Number: US-MYLANLABS-2022M1046671

PATIENT
  Age: 7 Year
  Sex: Male

DRUGS (2)
  1. BUSULFAN [Suspect]
     Active Substance: BUSULFAN
     Indication: Bone marrow transplant
     Dosage: UNK
     Route: 065
  2. FLUDARABINE PHOSPHATE [Concomitant]
     Active Substance: FLUDARABINE PHOSPHATE
     Dosage: UNK
     Route: 065

REACTIONS (4)
  - Pancytopenia [Unknown]
  - Nutritional supplementation [Unknown]
  - Mucosal inflammation [Unknown]
  - Hypertension [Unknown]
